FAERS Safety Report 12528511 (Version 3)
Quarter: 2016Q3

REPORT INFORMATION
  Report Type: Spontaneous
  Country: TH (occurrence: TH)
  Receive Date: 20160705
  Receipt Date: 20160825
  Transmission Date: 20161109
  Serious: Yes (Hospitalization)
  Sender: FDA-Public Use
  Company Number: TH-PFIZER INC-2016302171

PATIENT
  Age: 80 Year
  Sex: Male

DRUGS (16)
  1. APROVEL [Concomitant]
     Active Substance: IRBESARTAN
     Dosage: 300 MG (150MG, 2 TABLETS), 1X/DAY
  2. INLYTA [Suspect]
     Active Substance: AXITINIB
     Dosage: 5 MG (1 MG TABLET X5), 2X/DAY
     Route: 048
     Dates: end: 20160617
  3. MADIPLOT [Concomitant]
     Indication: HYPERTENSION
     Dosage: 10 MG (1 TABLET), 1X/DAY
     Route: 048
  4. MADIPLOT [Concomitant]
     Dosage: 10 MG (1 TABLET), 2X/DAY
     Route: 048
  5. HYDRALAZINE [Concomitant]
     Active Substance: HYDRALAZINE HYDROCHLORIDE
     Indication: HYPERTENSION
     Dosage: 50 MG (25MG, 2 TABLETS) , 3X/DAY
     Route: 048
  6. HYDRALAZINE [Concomitant]
     Active Substance: HYDRALAZINE HYDROCHLORIDE
     Dosage: 75 MG (25MG, 3 TABLETS),  3X/DAY
     Route: 048
  7. APROVEL [Concomitant]
     Active Substance: IRBESARTAN
     Indication: HYPERTENSION
     Dosage: 150 MG (150MG, 1 TABLET), 1X/DAY
  8. INLYTA [Suspect]
     Active Substance: AXITINIB
     Indication: RENAL CELL CARCINOMA
     Dosage: 5 MG TABLET, 2X/DAY
     Route: 048
     Dates: end: 20160611
  9. GLUCOPHAGE [Concomitant]
     Active Substance: METFORMIN HYDROCHLORIDE
     Indication: DIABETES MELLITUS
     Dosage: UNK
     Route: 048
  10. INLYTA [Suspect]
     Active Substance: AXITINIB
     Dosage: 7 MG, PER DAY
  11. INLYTA [Suspect]
     Active Substance: AXITINIB
     Dosage: 3 MG (1 MG TABLET X3), 2X/DAY
     Route: 048
     Dates: start: 20160704, end: 20160704
  12. INLYTA [Suspect]
     Active Substance: AXITINIB
     Dosage: 3 MG (1 MG TABLET X3), 2X/DAY
     Route: 048
     Dates: start: 20160706
  13. ACCUPRIL [Concomitant]
     Active Substance: QUINAPRIL HYDROCHLORIDE
     Indication: HYPERTENSION
     Dosage: 150 MG, UNK
     Route: 048
  14. HYDRALAZINE [Concomitant]
     Active Substance: HYDRALAZINE HYDROCHLORIDE
     Dosage: 100 MG (25MG, 4 TABLETS), 3X/DAY
  15. INLYTA [Suspect]
     Active Substance: AXITINIB
     Dosage: 5 MG (1 MG TABLET X5), 2X/DAY
     Route: 048
     Dates: start: 20160612, end: 20160612
  16. DIAMICRON [Concomitant]
     Active Substance: GLICLAZIDE
     Indication: DIABETES MELLITUS
     Dosage: UNK
     Route: 048

REACTIONS (9)
  - Pyrexia [Recovered/Resolved]
  - Haemolysis [Not Recovered/Not Resolved]
  - Polyuria [Not Recovered/Not Resolved]
  - Hypertension [Not Recovered/Not Resolved]
  - Abdominal distension [Not Recovered/Not Resolved]
  - Fatigue [Recovering/Resolving]
  - Condition aggravated [Not Recovered/Not Resolved]
  - Peripheral swelling [Not Recovered/Not Resolved]
  - Loss of consciousness [Recovered/Resolved]

NARRATIVE: CASE EVENT DATE: 20160612
